FAERS Safety Report 16269868 (Version 1)
Quarter: 2019Q2

REPORT INFORMATION
  Report Type: Spontaneous
  Country: GB (occurrence: GB)
  Receive Date: 20190503
  Receipt Date: 20190503
  Transmission Date: 20190711
  Serious: Yes (Hospitalization, Other)
  Sender: FDA-Public Use
  Company Number: GB-PFIZER INC-2019187566

PATIENT
  Age: 87 Year
  Sex: Female
  Weight: 58 kg

DRUGS (10)
  1. SALBUTAMOL [Concomitant]
     Active Substance: ALBUTEROL
     Dosage: UNK
  2. AMLODIPINE [Concomitant]
     Active Substance: AMLODIPINE BESYLATE
     Dosage: UNK
  3. RAMIPRIL. [Suspect]
     Active Substance: RAMIPRIL
     Indication: ESSENTIAL HYPERTENSION
     Dosage: 10 MG, 1X/DAY (IN THE MORNING)
     Route: 048
     Dates: start: 20180401, end: 20190329
  4. CETIRIZINE [Concomitant]
     Active Substance: CETIRIZINE HYDROCHLORIDE
     Dosage: UNK
  5. PREDNISOLONE. [Concomitant]
     Active Substance: PREDNISOLONE
     Dosage: UNK
  6. AMOXICILLIN. [Concomitant]
     Active Substance: AMOXICILLIN
     Dosage: UNK
  7. DOXAZOSIN [Concomitant]
     Active Substance: DOXAZOSIN\DOXAZOSIN MESYLATE
     Dosage: UNK
  8. CLARITHROMYCIN. [Concomitant]
     Active Substance: CLARITHROMYCIN
     Dosage: UNK
  9. LEVOTHYROXINE. [Concomitant]
     Active Substance: LEVOTHYROXINE
     Dosage: UNK
  10. BENDROFLUMETHIAZIDE [Suspect]
     Active Substance: BENDROFLUMETHIAZIDE
     Indication: ESSENTIAL HYPERTENSION
     Dosage: 2.5 MG, QD (IN THE MORNING.)
     Route: 048
     Dates: start: 20181101, end: 20190329

REACTIONS (5)
  - Hyponatraemia [Recovering/Resolving]
  - Dyspnoea [Unknown]
  - Pneumonia [Unknown]
  - Productive cough [Unknown]
  - Sputum discoloured [Unknown]

NARRATIVE: CASE EVENT DATE: 20190328
